FAERS Safety Report 6088663-9 (Version None)
Quarter: 2009Q1

REPORT INFORMATION
  Report Type: 
  Country: None (occurrence: None)
  Receive Date: 20090224
  Receipt Date: 20090219
  Transmission Date: 20090719
  Serious: Yes (Hospitalization)
  Sender: FDA-Public Use
  Company Number: FR-BRISTOL-MYERS SQUIBB COMPANY-14513766

PATIENT
  Age: 71 Year
  Sex: Male

DRUGS (3)
  1. CISPLATIN [Suspect]
     Indication: GASTRIC CANCER
     Dosage: START DATE: 02JAN06
     Dates: start: 20060126, end: 20060126
  2. EPIRUBICIN HCL [Suspect]
     Indication: GASTRIC CANCER
     Dosage: START DATE: 02JAN06
     Dates: start: 20060126, end: 20060126
  3. CAPECITABINE [Suspect]
     Indication: GASTRIC CANCER
     Dosage: START DATE: 02JAN06
     Dates: start: 20060126, end: 20060126

REACTIONS (1)
  - WEIGHT DECREASED [None]
